FAERS Safety Report 15313711 (Version 2)
Quarter: 2018Q3

REPORT INFORMATION
  Report Type: Report from Study
  Country: BE (occurrence: BE)
  Receive Date: 20180824
  Receipt Date: 20180911
  Transmission Date: 20181010
  Serious: Yes (Other)
  Sender: FDA-Public Use
  Company Number: BE-ROCHE-2173188

PATIENT
  Age: 43 Year
  Sex: Female
  Weight: 69.7 kg

DRUGS (24)
  1. PANTOMED (BELGIUM) [Concomitant]
     Indication: ABDOMINAL DISCOMFORT
     Route: 048
     Dates: start: 20180111
  2. IMODIUM [Concomitant]
     Active Substance: LOPERAMIDE HYDROCHLORIDE
     Indication: DIARRHOEA
     Route: 048
     Dates: start: 20180105, end: 20180615
  3. STOMATITIS COCKTAIL (AQUA CONSERVANS/LIDOCAINE/NYSTATIN/PREDNISOLONE/P [Concomitant]
     Route: 048
     Dates: start: 20180208, end: 20180221
  4. ATEZOLIZUMAB. [Suspect]
     Active Substance: ATEZOLIZUMAB
     Indication: BREAST CANCER
     Dosage: DATE OF MOST RECENT DOSE OF ATEZOLIZUMAB (840MG): 07/MAR/2018
     Route: 042
     Dates: start: 20171228
  5. NACREZ [Concomitant]
     Route: 048
  6. PARACETAMOL [Concomitant]
     Active Substance: ACETAMINOPHEN
     Route: 048
     Dates: start: 20180315, end: 20180328
  7. SANDOSTATINE [Concomitant]
     Active Substance: OCTREOTIDE ACETATE
     Indication: DIARRHOEA
     Route: 030
     Dates: start: 20180307, end: 20180307
  8. 3M CAVILON ANTIFUNGAL [Concomitant]
     Active Substance: MICONAZOLE NITRATE
     Route: 061
     Dates: start: 20180130, end: 20180404
  9. COBIMETINIB. [Suspect]
     Active Substance: COBIMETINIB
     Indication: BREAST CANCER
     Dosage: DATE OF MOST RECENT DOSE OF OPEN LABEL COBIMETINIB (60MG): 12/MAR/2018
     Route: 048
     Dates: start: 20171230
  10. NUROFEN [Concomitant]
     Active Substance: IBUPROFEN
     Indication: PAIN
  11. ZOLPIDEM [Concomitant]
     Active Substance: ZOLPIDEM\ZOLPIDEM TARTRATE
     Indication: INSOMNIA
     Route: 048
     Dates: start: 20171230, end: 20180516
  12. NAB?PACLITAXEL [Suspect]
     Active Substance: PACLITAXEL
     Indication: BREAST CANCER
     Dosage: ON 07/MAR/2018, SHE RECEIVED THE MOST RECENT DOSE OF NAB? PACLITAXEL 164 MG.
     Route: 042
     Dates: start: 20171228
  13. NUROFEN [Concomitant]
     Active Substance: IBUPROFEN
     Indication: HEADACHE
  14. MINOCYCLINE [Concomitant]
     Active Substance: MINOCYCLINE\MINOCYCLINE HYDROCHLORIDE
     Indication: DERMATITIS
     Route: 048
     Dates: start: 20180209, end: 20180615
  15. ALDACTONE (BELGIUM) [Concomitant]
     Indication: OEDEMA
     Route: 048
     Dates: start: 20180221, end: 20180615
  16. CONTRAMAL [Concomitant]
     Active Substance: TRAMADOL HYDROCHLORIDE
     Route: 048
     Dates: start: 20180313, end: 20180313
  17. SELENIUM [Concomitant]
     Active Substance: SELENIUM
     Route: 048
     Dates: start: 20180328, end: 20180615
  18. EMCONCOR MINOR [Concomitant]
     Indication: TACHYCARDIA
     Route: 048
  19. NUROFEN [Concomitant]
     Active Substance: IBUPROFEN
     Indication: MALAISE
     Route: 048
  20. FUCIDINE [Concomitant]
     Active Substance: FUSIDIC ACID
     Indication: DERMATITIS
     Route: 061
     Dates: start: 20180208, end: 20180615
  21. DAFALGAN CODEINE [Concomitant]
     Active Substance: ACETAMINOPHEN\CODEINE PHOSPHATE
     Route: 048
     Dates: start: 20180328
  22. STOMATITIS COCKTAIL (AQUA CONSERVANS/LIDOCAINE/NYSTATIN/PREDNISOLONE/P [Concomitant]
     Indication: STOMATITIS
     Route: 048
     Dates: start: 20180115
  23. STOMATITIS COCKTAIL (AQUA CONSERVANS/LIDOCAINE/NYSTATIN/PREDNISOLONE/P [Concomitant]
     Route: 048
     Dates: start: 20180305, end: 20180404
  24. CONTRAMAL [Concomitant]
     Active Substance: TRAMADOL HYDROCHLORIDE
     Route: 048
     Dates: start: 20180313, end: 20180315

REACTIONS (1)
  - Endocrine ophthalmopathy [Recovered/Resolved]

NARRATIVE: CASE EVENT DATE: 20180313
